FAERS Safety Report 18346826 (Version 1)
Quarter: 2020Q4

REPORT INFORMATION
  Report Type: Report from Study
  Country: CA (occurrence: CA)
  Receive Date: 20201005
  Receipt Date: 20201005
  Transmission Date: 20210114
  Serious: Yes (Hospitalization)
  Sender: FDA-Public Use
  Company Number: CA-HLS-202001561

PATIENT
  Age: 60 Year
  Sex: Male

DRUGS (1)
  1. CLOZARIL [Suspect]
     Active Substance: CLOZAPINE
     Indication: SCHIZOPHRENIA
     Route: 048
     Dates: start: 20040312

REACTIONS (5)
  - Confusional state [Unknown]
  - Refusal of treatment by patient [Unknown]
  - Anal incontinence [Unknown]
  - Chronic obstructive pulmonary disease [Recovered/Resolved]
  - Urinary incontinence [Unknown]
